FAERS Safety Report 6343360-7 (Version None)
Quarter: 2009Q3

REPORT INFORMATION
  Report Type: 
  Country: None (occurrence: None)
  Receive Date: 20090908
  Receipt Date: 20090828
  Transmission Date: 20100115
  Serious: Yes (Hospitalization, Other)
  Sender: FDA-Public Use
  Company Number: PHHY2009JP35162

PATIENT
  Age: 71 Year
  Sex: Male

DRUGS (9)
  1. NEORAL [Suspect]
     Indication: PUSTULAR PSORIASIS
     Dosage: 300 MG DAILY AFTER SUPPER
     Route: 048
  2. NEORAL [Suspect]
     Dosage: 200 MG DAILY AFTER SUPPER
     Route: 048
  3. NEORAL [Suspect]
     Dosage: 125 MG DAILY AFTER SUPPER
     Route: 048
  4. NEORAL [Suspect]
     Dosage: 125 MG DAILY BEFORE BREAKFAST
     Route: 048
  5. NEORAL [Suspect]
     Dosage: 100 MG DAILY
     Route: 048
  6. NEORAL [Suspect]
     Dosage: 75 MG DAILY
     Route: 048
  7. NEORAL [Suspect]
     Dosage: 50 MG DAILY
     Route: 048
  8. TIGASON [Concomitant]
     Indication: PUSTULAR PSORIASIS
     Dosage: 40 MG/DAY
     Route: 048
  9. PREDONINE [Concomitant]
     Indication: RHEUMATOID ARTHRITIS

REACTIONS (15)
  - DRUG LEVEL INCREASED [None]
  - ERYTHEMA [None]
  - GINGIVAL HYPERPLASIA [None]
  - GINGIVAL SWELLING [None]
  - LIP DRY [None]
  - NAIL ATROPHY [None]
  - NAIL DISORDER [None]
  - NEPHROPATHY TOXIC [None]
  - PIGMENTATION DISORDER [None]
  - PSORIASIS [None]
  - PUSTULAR PSORIASIS [None]
  - RASH [None]
  - RENAL DISORDER [None]
  - RENAL IMPAIRMENT [None]
  - SKIN EXFOLIATION [None]
